FAERS Safety Report 6385712-5 (Version None)
Quarter: 2009Q4

REPORT INFORMATION
  Report Type: 
  Country: None (occurrence: None)
  Receive Date: 20091002
  Receipt Date: 20081006
  Transmission Date: 20100525
  Serious: No
  Sender: FDA-Public Use
  Company Number: US-ASTRAZENECA-2008UW21775

PATIENT
  Age: 72 Year
  Sex: Female
  Weight: 113.4 kg

DRUGS (8)
  1. ARIMIDEX [Suspect]
     Indication: BREAST CANCER
     Route: 048
     Dates: start: 20070501
  2. COZAAR [Concomitant]
  3. BETAPACE [Concomitant]
  4. BUMEX [Concomitant]
  5. GLUCOTROL [Concomitant]
  6. METFORMIN [Concomitant]
  7. VITAMIN D3 50 [Concomitant]
  8. K DUR [Concomitant]

REACTIONS (3)
  - BONE PAIN [None]
  - HOT FLUSH [None]
  - NEUROPATHY PERIPHERAL [None]
